FAERS Safety Report 8188009-6 (Version None)
Quarter: 2012Q1

REPORT INFORMATION
  Report Type: 
  Country: None (occurrence: None)
  Receive Date: 20120302
  Receipt Date: 20120217
  Transmission Date: 20120608
  Serious: Yes (Other)
  Sender: FDA-Public Use
  Company Number: USW201202-000028

PATIENT
  Age: 68 Year
  Sex: Male

DRUGS (1)
  1. APOKYN [Suspect]
     Indication: PARKINSON'S DISEASE
     Dosage: 1.5 MG, SUBCUTANEOUS
     Route: 058
     Dates: start: 20120118, end: 20120129

REACTIONS (4)
  - PAIN [None]
  - INFLAMMATION [None]
  - ERYTHEMA [None]
  - SKIN REACTION [None]
